FAERS Safety Report 8281360-0 (Version None)
Quarter: 2012Q2

REPORT INFORMATION
  Report Type: 
  Country: None (occurrence: None)
  Receive Date: 20120413
  Receipt Date: 20120406
  Transmission Date: 20120825
  Serious: No
  Sender: FDA-Public Use
  Company Number: US-PFIZER INC-2012072805

PATIENT
  Sex: Female
  Weight: 85.261 kg

DRUGS (15)
  1. CARAC [Concomitant]
     Indication: ARRHYTHMIA
  2. ACETYLSALICYLIC ACID [Concomitant]
     Indication: CARDIOMEGALY
     Dosage: UNK
  3. ACETYLSALICYLIC ACID [Concomitant]
     Indication: ARRHYTHMIA
  4. NEURONTIN [Suspect]
     Indication: LUMBAR SPINAL STENOSIS
     Dosage: 500 MG, 2X/DAY
     Route: 048
  5. LIPIDIL [Concomitant]
     Dosage: UNK
  6. NEURONTIN [Suspect]
     Indication: SPINAL FRACTURE
     Dosage: UNK
     Route: 048
  7. SITAGLIPTIN AND METFORMIN HYDROCHLORIDE [Concomitant]
     Indication: TYPE 2 DIABETES MELLITUS
     Dosage: 500/50 MG, UNK
  8. NEURONTIN [Suspect]
     Indication: NERVE INJURY
     Dosage: 700MG IN MORNING AND 300MG AT NIGHT
     Route: 048
  9. NEURONTIN [Suspect]
     Dosage: 100 MG, 6 PER DAY
  10. COREG [Concomitant]
     Indication: HYPERTENSION
     Dosage: 10 MG
  11. NEURONTIN [Suspect]
     Dosage: 300 MG, SIX OF THOSE A DAY
  12. ZOCOR [Concomitant]
     Indication: BLOOD CHOLESTEROL INCREASED
     Dosage: UNK
  13. CARAC [Concomitant]
     Indication: CARDIOMEGALY
     Dosage: UNK
  14. NEURONTIN [Suspect]
     Indication: NEUROPATHY PERIPHERAL
     Dosage: 300 MG, 4X/DAY
     Route: 048
  15. ACETAMINOPHEN [Concomitant]
     Dosage: UNK

REACTIONS (14)
  - HEART RATE INCREASED [None]
  - DECREASED APPETITE [None]
  - HEADACHE [None]
  - VISION BLURRED [None]
  - NIGHTMARE [None]
  - MALAISE [None]
  - PAIN [None]
  - HYPERSOMNIA [None]
  - FEELING ABNORMAL [None]
  - DRY MOUTH [None]
  - DIARRHOEA [None]
  - ASTHENIA [None]
  - NAUSEA [None]
  - SOMNOLENCE [None]
